FAERS Safety Report 8680713 (Version 2)
Quarter: 2014Q4

REPORT INFORMATION
  Report Type: Spontaneous
  Country: US (occurrence: US)
  Receive Date: 20120724
  Receipt Date: 20141104
  Transmission Date: 20150529
  Serious: Yes (Hospitalization, Other)
  Sender: FDA-Public Use
  Company Number: US-GLAXOSMITHKLINE-A0876809A

PATIENT
  Sex: Male

DRUGS (9)
  1. LIPITOR [Concomitant]
     Active Substance: ATORVASTATIN CALCIUM
  2. GLUCOVANCE [Concomitant]
     Active Substance: GLYBURIDE\METFORMIN HYDROCHLORIDE
  3. VIAGRA [Concomitant]
     Active Substance: SILDENAFIL CITRATE
  4. AVANDAMET [Suspect]
     Active Substance: METFORMIN HYDROCHLORIDE\ROSIGLITAZONE MALEATE
     Indication: DIABETES MELLITUS
     Route: 048
     Dates: start: 200612
  5. AVANDARYL [Suspect]
     Active Substance: GLIMEPIRIDE\ROSIGLITAZONE MALEATE
     Indication: DIABETES MELLITUS
     Route: 048
     Dates: start: 200612
  6. COZAAR [Concomitant]
     Active Substance: LOSARTAN POTASSIUM
  7. AVANDIA [Suspect]
     Active Substance: ROSIGLITAZONE MALEATE
     Indication: DIABETES MELLITUS
     Dosage: 4 MG, QD
     Route: 048
     Dates: start: 20000302, end: 200812
  8. NEURONTIN [Concomitant]
     Active Substance: GABAPENTIN
  9. PRINIVIL [Concomitant]
     Active Substance: LISINOPRIL

REACTIONS (11)
  - Myocardial ischaemia [Unknown]
  - Coronary artery disease [Unknown]
  - Transient ischaemic attack [Unknown]
  - Arteriosclerosis [Unknown]
  - Acute coronary syndrome [Unknown]
  - Hemiparesis [Unknown]
  - Cardiac failure congestive [Unknown]
  - Cerebrovascular accident [Not Recovered/Not Resolved]
  - Cerebral atrophy [Unknown]
  - Carotid artery occlusion [Unknown]
  - Cerebellar atrophy [Unknown]
